FAERS Safety Report 10221638 (Version 2)
Quarter: 2015Q1

REPORT INFORMATION
  Report Type: Spontaneous
  Country: US (occurrence: US)
  Receive Date: 20140606
  Receipt Date: 20150217
  Transmission Date: 20150720
  Serious: Yes (Other)
  Sender: FDA-Public Use
  Company Number: US-PFIZER INC-2014151909

PATIENT
  Sex: Female

DRUGS (1)
  1. LYRICA [Suspect]
     Active Substance: PREGABALIN
     Dosage: 100 MG, 1X/DAY(50MG, 2-QHS)

REACTIONS (4)
  - Oedema peripheral [Unknown]
  - Tooth disorder [Unknown]
  - Back disorder [Unknown]
  - Sedation [Unknown]
